FAERS Safety Report 9375226 (Version 3)
Quarter: 2014Q4

REPORT INFORMATION
  Report Type: Spontaneous
  Country: US (occurrence: US)
  Receive Date: 20130628
  Receipt Date: 20141020
  Transmission Date: 20150529
  Serious: No
  Sender: FDA-Public Use
  Company Number: US-009507513-1306USA013100

PATIENT
  Sex: Female

DRUGS (1)
  1. NUVARING [Suspect]
     Active Substance: ETHINYL ESTRADIOL\ETONOGESTREL
     Indication: CONTRACEPTION
     Dosage: UNK
     Route: 067
     Dates: start: 2011

REACTIONS (4)
  - Haemorrhage intracranial [Unknown]
  - Transient ischaemic attack [Unknown]
  - Venous thrombosis [Unknown]
  - Depression [Unknown]

NARRATIVE: CASE EVENT DATE: 20110703
